FAERS Safety Report 6198699-5 (Version None)
Quarter: 2009Q2

REPORT INFORMATION
  Report Type: 
  Country: None (occurrence: None)
  Receive Date: 20090521
  Receipt Date: 20090519
  Transmission Date: 20091009
  Serious: Yes (Death, Other)
  Sender: FDA-Public Use
  Company Number: PHHY2008MX29649

PATIENT
  Sex: Male

DRUGS (2)
  1. ZELMAC [Suspect]
     Indication: IRRITABLE BOWEL SYNDROME
     Dosage: 6 MG/DAY (2 TABLETS/DAY)
     Route: 048
     Dates: start: 20060101
  2. ANTIDEPRESSANTS [Concomitant]

REACTIONS (2)
  - COMPLETED SUICIDE [None]
  - TREATMENT NONCOMPLIANCE [None]
